FAERS Safety Report 10948162 (Version 1)
Quarter: 2015Q1

REPORT INFORMATION
  Report Type: Spontaneous
  Country: US (occurrence: US)
  Receive Date: 20150324
  Receipt Date: 20150324
  Transmission Date: 20150721
  Serious: No
  Sender: FDA-Public Use
  Company Number: US-BIOGENIDEC-2015BI016307

PATIENT
  Age: 71 Year
  Sex: Female

DRUGS (8)
  1. HYDRO-TABS [Concomitant]
  2. BENICAR [Concomitant]
     Active Substance: OLMESARTAN MEDOXOMIL
  3. TOPAMAX [Concomitant]
     Active Substance: TOPIRAMATE
  4. VERAPAMIL HCL CR [Concomitant]
  5. AVONEX [Suspect]
     Active Substance: INTERFERON BETA-1A
     Indication: MULTIPLE SCLEROSIS
     Route: 030
     Dates: start: 20120207
  6. VALIUM [Concomitant]
     Active Substance: DIAZEPAM
  7. ASPIRIN. [Concomitant]
     Active Substance: ASPIRIN
  8. FEMARA [Concomitant]
     Active Substance: LETROZOLE

REACTIONS (2)
  - Influenza like illness [Recovered/Resolved]
  - Influenza [Unknown]

NARRATIVE: CASE EVENT DATE: 201501
